FAERS Safety Report 9246616 (Version 2)
Quarter: 2013Q2

REPORT INFORMATION
  Report Type: Spontaneous
  Country: US (occurrence: US)
  Receive Date: 20130422
  Receipt Date: 20130422
  Transmission Date: 20140414
  Serious: Yes (Other)
  Sender: FDA-Public Use
  Company Number: US-ABBOTT-12P-163-0971093-00

PATIENT
  Age: 15 Year
  Sex: Male
  Weight: 85.6 kg

DRUGS (9)
  1. LUPRON DEPOT-PED 15 MG [Suspect]
     Indication: BODY HEIGHT BELOW NORMAL
     Route: 030
     Dates: start: 201206
  2. LUPRON DEPOT-PED 15 MG [Suspect]
     Indication: PRECOCIOUS PUBERTY
  3. SYNTHROID [Concomitant]
     Indication: HYPOTHYROIDISM
  4. PRILOSEC [Concomitant]
     Indication: PRODUCT USED FOR UNKNOWN INDICATION
  5. MINOCYCLINE [Concomitant]
     Indication: PRODUCT USED FOR UNKNOWN INDICATION
  6. INSULIN PUMP [Concomitant]
     Indication: TYPE 1 DIABETES MELLITUS
  7. NOVALOG INSULIN [Concomitant]
     Indication: DIABETES MELLITUS
  8. LEVOTHYROXINE [Concomitant]
     Indication: HYPOTHYROIDISM
  9. PREVACID [Concomitant]
     Indication: GASTROOESOPHAGEAL REFLUX DISEASE

REACTIONS (2)
  - Asthma [Recovered/Resolved]
  - Dyspnoea [Not Recovered/Not Resolved]
